FAERS Safety Report 6156132-3 (Version None)
Quarter: 2009Q2

REPORT INFORMATION
  Report Type: 
  Country: None (occurrence: None)
  Receive Date: 20090415
  Receipt Date: 20090409
  Transmission Date: 20091009
  Serious: Yes (Other)
  Sender: FDA-Public Use
  Company Number: US-ELI_LILLY_AND_COMPANY-US200904002147

PATIENT
  Sex: Female
  Weight: 118.37 kg

DRUGS (5)
  1. BYETTA [Suspect]
     Indication: TYPE 2 DIABETES MELLITUS
     Dosage: 5 UG, 2/D
     Route: 058
     Dates: start: 20090201, end: 20090301
  2. BYETTA [Suspect]
     Dosage: 10 UG, 2/D
     Route: 058
     Dates: start: 20090301
  3. ASPIRIN [Concomitant]
     Dosage: 81 MG, UNK
     Dates: end: 20090301
  4. MULTI-VITAMIN [Concomitant]
     Dates: end: 20090301
  5. ZITHROMAX [Concomitant]
     Indication: SINUSITIS
     Dates: start: 20090301, end: 20090101

REACTIONS (9)
  - ABDOMINAL PAIN [None]
  - ABDOMINAL PAIN UPPER [None]
  - BACK PAIN [None]
  - BLOOD AMYLASE INCREASED [None]
  - NAUSEA [None]
  - PANCREATITIS [None]
  - REFLUX GASTRITIS [None]
  - SINUSITIS [None]
  - VOMITING [None]
